FAERS Safety Report 12371414 (Version 5)
Quarter: 2016Q4

REPORT INFORMATION
  Report Type: Report from Study
  Country: SE (occurrence: SE)
  Receive Date: 20160516
  Receipt Date: 20161006
  Transmission Date: 20170207
  Serious: Yes (Other)
  Sender: FDA-Public Use
  Company Number: SE-EISAI MEDICAL RESEARCH-EC-2016-015088

PATIENT
  Age: 37 Year
  Sex: Male
  Weight: 73.5 kg

DRUGS (7)
  1. ABSENOR RETARD [Concomitant]
  2. FYCOMPA [Suspect]
     Active Substance: PERAMPANEL
     Route: 048
     Dates: start: 20150812, end: 20151110
  3. LAMICTAL [Concomitant]
     Active Substance: LAMOTRIGINE
  4. SSABRILEX [Concomitant]
  5. FRISIUM [Concomitant]
     Active Substance: CLOBAZAM
  6. FYCOMPA [Suspect]
     Active Substance: PERAMPANEL
     Indication: EPILEPSY
     Route: 048
     Dates: start: 20150513, end: 20150811
  7. FYCOMPA [Suspect]
     Active Substance: PERAMPANEL
     Route: 048
     Dates: start: 20151111, end: 20160511

REACTIONS (2)
  - Drooling [Unknown]
  - Generalised tonic-clonic seizure [Recovered/Resolved]

NARRATIVE: CASE EVENT DATE: 20150820
